FAERS Safety Report 6753155-8 (Version None)
Quarter: 2010Q2

REPORT INFORMATION
  Report Type: 
  Country: None (occurrence: None)
  Receive Date: 20100603
  Receipt Date: 20100524
  Transmission Date: 20101027
  Serious: Yes (Hospitalization)
  Sender: FDA-Public Use
  Company Number: ES-PFIZER INC-2010064562

PATIENT
  Age: 51 Year
  Sex: Female

DRUGS (1)
  1. CHAMPIX [Suspect]
     Indication: TOBACCO ABUSE
     Dosage: 0.5 MG, 2X/DAY
     Route: 048
     Dates: start: 20100325, end: 20100415

REACTIONS (1)
  - ANGINA UNSTABLE [None]
